FAERS Safety Report 5285845-0 (Version None)
Quarter: 2007Q1

REPORT INFORMATION
  Report Type: 
  Country: None (occurrence: None)
  Receive Date: 20070104
  Receipt Date: 20061101
  Transmission Date: 20070707
  Serious: No
  Sender: FDA-Public Use
  Company Number: BDI-008837

PATIENT
  Age: 55 Year
  Sex: Male

DRUGS (2)
  1. MULTIHANCE [Suspect]
     Indication: METASTASIS
     Dosage: IV
     Route: 042
     Dates: start: 20061025, end: 20061025
  2. MULTIHANCE [Suspect]
     Indication: NUCLEAR MAGNETIC RESONANCE IMAGING BRAIN
     Dosage: IV
     Route: 042
     Dates: start: 20061025, end: 20061025

REACTIONS (1)
  - URTICARIA [None]
